FAERS Safety Report 14907361 (Version 2)
Quarter: 2018Q2

REPORT INFORMATION
  Report Type: Spontaneous
  Country: NL (occurrence: NL)
  Receive Date: 20180517
  Receipt Date: 20180524
  Transmission Date: 20180711
  Serious: Yes (Hospitalization, Other)
  Sender: FDA-Public Use
  Company Number: NL-AUROBINDO-AUR-APL-2018-025771

PATIENT
  Age: 55 Year
  Sex: Female
  Weight: 80 kg

DRUGS (5)
  1. NAPROXEN 500 MG, TABLET [Suspect]
     Active Substance: NAPROXEN
     Indication: PROCEDURAL PAIN
     Dosage: 500 MILLIGRAM, TWO TIMES A DAY, 2DD 1
     Route: 065
     Dates: start: 20180423, end: 20180424
  2. PARACETAMOL [Concomitant]
     Active Substance: ACETAMINOPHEN
     Indication: PRODUCT USED FOR UNKNOWN INDICATION
     Dosage: UNK
     Route: 065
  3. OMEPRAZOLE. [Concomitant]
     Active Substance: OMEPRAZOLE
     Indication: PRODUCT USED FOR UNKNOWN INDICATION
     Dosage: UNK
     Route: 065
  4. NAPROXEN 500 MG, TABLET [Suspect]
     Active Substance: NAPROXEN
     Indication: ABDOMINAL HERNIA
  5. PARACETAMOL [Concomitant]
     Active Substance: ACETAMINOPHEN
     Dosage: ()

REACTIONS (1)
  - Pericarditis [Unknown]

NARRATIVE: CASE EVENT DATE: 20180423
